FAERS Safety Report 5445264-0 (Version None)
Quarter: 2007Q3

REPORT INFORMATION
  Report Type: 
  Country: None (occurrence: None)
  Receive Date: 20070731
  Receipt Date: 20070530
  Transmission Date: 20080115
  Serious: Yes (Hospitalization)
  Sender: FDA-Public Use
  Company Number: US200705004619

PATIENT
  Age: 74 Year
  Sex: Male
  Weight: 106.1 kg

DRUGS (3)
  1. BYETTA [Suspect]
     Indication: DIABETES MELLITUS
     Dosage: 5 UG, 2/D, SUBCUTANEOUS 10 UG, 2/D, SUBCUTANEOUS 10 UG, 2/D, SUBCUTANEOUS
     Route: 058
     Dates: start: 20060501, end: 20060101
  2. BYETTA [Suspect]
     Indication: DIABETES MELLITUS
     Dosage: 5 UG, 2/D, SUBCUTANEOUS 10 UG, 2/D, SUBCUTANEOUS 10 UG, 2/D, SUBCUTANEOUS
     Route: 058
     Dates: start: 20060101, end: 20070508
  3. BYETTA [Suspect]
     Indication: DIABETES MELLITUS
     Dosage: 5 UG, 2/D, SUBCUTANEOUS 10 UG, 2/D, SUBCUTANEOUS 10 UG, 2/D, SUBCUTANEOUS
     Route: 058
     Dates: start: 20070514

REACTIONS (5)
  - ABDOMINAL DISTENSION [None]
  - BLOOD GLUCOSE INCREASED [None]
  - PANCREATITIS [None]
  - WEIGHT DECREASED [None]
  - WEIGHT INCREASED [None]
